FAERS Safety Report 8814542 (Version 2)
Quarter: 2012Q4

REPORT INFORMATION
  Report Type: Spontaneous
  Country: US (occurrence: None)
  Receive Date: 20120925
  Receipt Date: 20121221
  Transmission Date: 20130627
  Serious: Yes (Death)
  Sender: FDA-Public Use
  Company Number: ACO_32037_2012

PATIENT
  Age: 44 Year
  Sex: Male

DRUGS (1)
  1. AMPYRA [Suspect]
     Indication: GAIT DISTURBANCE
     Route: 048
     Dates: start: 2012, end: 2012

REACTIONS (3)
  - Acquired immunodeficiency syndrome [None]
  - Acute HIV infection [None]
  - Drug ineffective [None]
